FAERS Safety Report 10653154 (Version 6)
Quarter: 2015Q2

REPORT INFORMATION
  Report Type: Report from Study
  Country: GB (occurrence: GB)
  Receive Date: 20141215
  Receipt Date: 20150424
  Transmission Date: 20150821
  Serious: Yes (Life-Threatening, Hospitalization, Other)
  Sender: FDA-Public Use
  Company Number: GB-NWEHEALTH-NWEH717

PATIENT

DRUGS (10)
  1. FLUTICASONE FUROATE + VILANTEROL TRIFENATATE [Suspect]
     Active Substance: FLUTICASONE FUROATE\VILANTEROL TRIFENATATE
     Indication: CHRONIC OBSTRUCTIVE PULMONARY DISEASE
     Dosage: 100/25 UG, QD
     Route: 055
     Dates: start: 20140616
  2. SPIRIVA [Concomitant]
     Active Substance: TIOTROPIUM BROMIDE MONOHYDRATE
     Indication: CHRONIC OBSTRUCTIVE PULMONARY DISEASE
     Dosage: 18 UG, QD
     Route: 055
     Dates: start: 20070622, end: 20140615
  3. WARFARIN [Concomitant]
     Active Substance: WARFARIN
     Indication: DEEP VEIN THROMBOSIS
     Dosage: 1MG, UNK
     Route: 048
     Dates: start: 201302, end: 201408
  4. TRAMADOL [Concomitant]
     Active Substance: TRAMADOL
     Indication: PAIN
     Dosage: 50 MG, PRN
     Route: 048
     Dates: start: 20070705
  5. SERETIDE [Concomitant]
     Active Substance: FLUTICASONE FUROATE\SALMETEROL XINAFOATE
     Indication: CHRONIC OBSTRUCTIVE PULMONARY DISEASE
     Dosage: 500/50 UG, BID
     Route: 055
     Dates: start: 20050725, end: 20140615
  6. ENOXAPARIN [Concomitant]
     Active Substance: ENOXAPARIN
     Dosage: 150 UG, QD
     Route: 058
     Dates: start: 20140812, end: 20141024
  7. ENOXAPARIN [Concomitant]
     Active Substance: ENOXAPARIN
     Indication: DEEP VEIN THROMBOSIS
     Dosage: 120 UG, QD
     Route: 058
     Dates: start: 20141024
  8. CANDESARTAN [Suspect]
     Active Substance: CANDESARTAN
     Indication: MYOCARDIAL ISCHAEMIA
     Dosage: 16 MG, QD
     Route: 048
     Dates: start: 20090929
  9. TIOTROPIUM [Suspect]
     Active Substance: TIOTROPIUM
     Indication: CHRONIC OBSTRUCTIVE PULMONARY DISEASE
     Dosage: 18 UG, QD
     Route: 055
     Dates: start: 20140616
  10. ISOSORBIDE MONONITRATE. [Concomitant]
     Active Substance: ISOSORBIDE MONONITRATE
     Indication: MYOCARDIAL ISCHAEMIA
     Dosage: 60 MG, QD
     Route: 048
     Dates: start: 20071109

REACTIONS (4)
  - Gastrointestinal dysplasia [Not Recovered/Not Resolved]
  - Renal function test abnormal [Recovered/Resolved]
  - Atrial fibrillation [Recovered/Resolved]
  - Dehydration [Recovered/Resolved]

NARRATIVE: CASE EVENT DATE: 20140722
